FAERS Safety Report 6676509-7 (Version None)
Quarter: 2010Q2

REPORT INFORMATION
  Report Type: 
  Country: None (occurrence: None)
  Receive Date: 20100412
  Receipt Date: 20091218
  Transmission Date: 20101027
  Serious: Yes (Hospitalization)
  Sender: FDA-Public Use
  Company Number: 980126-107050439

PATIENT
  Age: 88 Year
  Sex: Female

DRUGS (19)
  1. LEVAQUIN [Suspect]
     Indication: HYPOXIA
     Route: 048
     Dates: start: 19980116, end: 19980120
  2. LEVAQUIN [Suspect]
     Indication: URINARY TRACT INFECTION
     Route: 048
     Dates: start: 19980116, end: 19980120
  3. LEVAQUIN [Suspect]
     Route: 048
     Dates: start: 19980116, end: 19980120
  4. DONEPEZIL HCL [Suspect]
     Indication: DRUG USE FOR UNKNOWN INDICATION
     Route: 065
  5. LEVAQUIN [Suspect]
     Route: 042
  6. LEVAQUIN [Suspect]
     Route: 042
  7. HYDROXYZINE [Concomitant]
     Route: 065
  8. ACETAMINOPHEN [Concomitant]
     Route: 065
  9. DIPHENHYDRAMINE HYDROCHLORIDE [Concomitant]
     Route: 065
  10. COMPAZINE [Concomitant]
     Route: 065
  11. LOPERAMIDE [Concomitant]
     Route: 065
  12. CALCIUM [Concomitant]
     Route: 065
  13. MIACALCIN [Concomitant]
     Route: 065
  14. LORAZEPAM [Concomitant]
     Route: 065
  15. LEVOTHYROXINE SODIUM [Concomitant]
     Route: 065
  16. CAPSAICIN [Concomitant]
     Route: 065
  17. SINUS TABLETS NOS [Concomitant]
     Route: 065
  18. CORTISONE CREAM [Concomitant]
     Route: 065
  19. TRIPLE ANTIBIOTIC OINTMENT [Concomitant]
     Route: 065

REACTIONS (1)
  - INAPPROPRIATE ANTIDIURETIC HORMONE SECRETION [None]
